FAERS Safety Report 25207436 (Version 1)
Quarter: 2025Q2

REPORT INFORMATION
  Report Type: Spontaneous
  Country: CZ (occurrence: CZ)
  Receive Date: 20250417
  Receipt Date: 20250417
  Transmission Date: 20250716
  Serious: Yes (Other)
  Sender: NOVARTIS
  Company Number: CZ-002147023-NVSC2025CZ061835

PATIENT
  Sex: Female

DRUGS (1)
  1. MAYZENT [Suspect]
     Active Substance: SIPONIMOD
     Indication: Product used for unknown indication
     Route: 065
     Dates: start: 202210

REACTIONS (4)
  - Adenocarcinoma pancreas [Unknown]
  - Multiple sclerosis relapse [Unknown]
  - C-reactive protein increased [Unknown]
  - Dyspnoea [Unknown]
